FAERS Safety Report 18587949 (Version 2)
Quarter: 2020Q4

REPORT INFORMATION
  Report Type: Report from Study
  Country: CA (occurrence: CA)
  Receive Date: 20201207
  Receipt Date: 20201212
  Transmission Date: 20210114
  Serious: Yes (Death)
  Sender: FDA-Public Use
  Company Number: NVSC2020CA325605

PATIENT
  Age: 76 Year
  Sex: Male

DRUGS (2)
  1. JADENU [Suspect]
     Active Substance: DEFERASIROX
     Dosage: 900 MG, QD
     Route: 048
     Dates: start: 201908
  2. JADENU [Suspect]
     Active Substance: DEFERASIROX
     Indication: APLASTIC ANAEMIA
     Dosage: 1080 MG, QD
     Route: 048

REACTIONS (1)
  - Infective aneurysm [Fatal]

NARRATIVE: CASE EVENT DATE: 202011
